FAERS Safety Report 12981124 (Version 2)
Quarter: 2016Q4

REPORT INFORMATION
  Report Type: Spontaneous
  Country: US (occurrence: US)
  Receive Date: 20161128
  Receipt Date: 20161201
  Transmission Date: 20170207
  Serious: Yes (Other)
  Sender: FDA-Public Use
  Company Number: US-AMGEN-USASP2016165955

PATIENT
  Age: 51 Year
  Sex: Female

DRUGS (5)
  1. PROLIA [Suspect]
     Active Substance: DENOSUMAB
     Indication: OSTEOPOROSIS POSTMENOPAUSAL
     Dosage: UNK
     Route: 065
     Dates: start: 201607
  2. ENBREL [Concomitant]
     Active Substance: ETANERCEPT
  3. CALCIUM [Concomitant]
     Active Substance: CALCIUM
  4. ZOCOR [Concomitant]
     Active Substance: SIMVASTATIN
  5. VITAMIN D [Concomitant]
     Active Substance: CHOLECALCIFEROL

REACTIONS (9)
  - Abasia [Unknown]
  - Feeling abnormal [Not Recovered/Not Resolved]
  - Cough [Unknown]
  - Bone pain [Unknown]
  - Myalgia [Unknown]
  - Hypoaesthesia [Unknown]
  - Dysstasia [Unknown]
  - Pain in extremity [Unknown]
  - Alopecia [Recovering/Resolving]

NARRATIVE: CASE EVENT DATE: 201608
